FAERS Safety Report 15338886 (Version 1)
Quarter: 2018Q3

REPORT INFORMATION
  Report Type: Spontaneous
  Country: US (occurrence: US)
  Receive Date: 20180831
  Receipt Date: 20180831
  Transmission Date: 20181010
  Serious: No
  Sender: FDA-Public Use
  Company Number: US-BAYER-2018-157698

PATIENT
  Age: 64 Year
  Sex: Female

DRUGS (1)
  1. CLIMARA [Suspect]
     Active Substance: ESTRADIOL
     Dosage: UNK
     Route: 062
     Dates: start: 2012

REACTIONS (4)
  - Hyperhidrosis [None]
  - Palpitations [None]
  - Product adhesion issue [None]
  - Headache [None]

NARRATIVE: CASE EVENT DATE: 201808
